FAERS Safety Report 10721381 (Version 3)
Quarter: 2015Q2

REPORT INFORMATION
  Report Type: Report from Study
  Country: US (occurrence: US)
  Receive Date: 20150119
  Receipt Date: 20150526
  Transmission Date: 20150821
  Serious: Yes (Hospitalization, Other)
  Sender: FDA-Public Use
  Company Number: US-SA-2014SA033465

PATIENT
  Age: 35 Year
  Sex: Female

DRUGS (1)
  1. AUBAGIO [Suspect]
     Active Substance: TERIFLUNOMIDE
     Indication: MULTIPLE SCLEROSIS
     Route: 048
     Dates: start: 20140214

REACTIONS (12)
  - Subcutaneous abscess [Recovering/Resolving]
  - Influenza like illness [Not Recovered/Not Resolved]
  - Blindness [Unknown]
  - Therapeutic response unexpected [Unknown]
  - Multiple sclerosis relapse [Unknown]
  - Urinary tract infection [Recovered/Resolved]
  - Nasal congestion [Not Recovered/Not Resolved]
  - Memory impairment [Unknown]
  - Hypokinesia [Unknown]
  - Dysgraphia [Unknown]
  - Nuclear magnetic resonance imaging abnormal [Unknown]
  - Fatigue [Unknown]

NARRATIVE: CASE EVENT DATE: 201503
